FAERS Safety Report 4820780-0 (Version None)
Quarter: 2005Q4

REPORT INFORMATION
  Report Type: 
  Country: None (occurrence: None)
  Receive Date: 20051103
  Receipt Date: 20051028
  Transmission Date: 20060501
  Serious: Yes (Hospitalization, Other)
  Sender: FDA-Public Use
  Company Number: GBWYE016329SEP05

PATIENT
  Age: 31 Year
  Sex: Female

DRUGS (3)
  1. MINOCIN [Suspect]
     Indication: ACNE
     Dosage: 100MG , ORAL
     Route: 048
     Dates: start: 20050329, end: 20050519
  2. POLYTAR (COAL TAR) [Concomitant]
  3. FLUCONAZOLE [Concomitant]

REACTIONS (9)
  - ALANINE AMINOTRANSFERASE INCREASED [None]
  - BILIRUBIN CONJUGATED INCREASED [None]
  - BLOOD ALBUMIN INCREASED [None]
  - BLOOD ALKALINE PHOSPHATASE INCREASED [None]
  - BLOOD BILIRUBIN INCREASED [None]
  - FATIGUE [None]
  - GAMMA-GLUTAMYLTRANSFERASE INCREASED [None]
  - HEPATOTOXICITY [None]
  - JAUNDICE [None]
